FAERS Safety Report 9048550 (Version 5)
Quarter: 2013Q2

REPORT INFORMATION
  Report Type: Spontaneous
  Country: US (occurrence: None)
  Receive Date: 20130116
  Receipt Date: 20130507
  Transmission Date: 20140414
  Serious: Yes (Other)
  Sender: FDA-Public Use
  Company Number: ADR-2013-00047

PATIENT
  Age: 14 Year
  Sex: Female

DRUGS (1)
  1. LIORESAL [Suspect]
     Indication: MUSCLE SPASTICITY
     Dosage: 211.1 MCG/DAY (FLEX)

REACTIONS (10)
  - Clonus [None]
  - Sedation [None]
  - Pseudocyst [None]
  - Spinal cord disorder [None]
  - Pharyngitis streptococcal [None]
  - Seroma [None]
  - Fat necrosis [None]
  - Culture wound positive [None]
  - Pseudomonas test positive [None]
  - Staphylococcus test positive [None]
